FAERS Safety Report 6412762-2 (Version None)
Quarter: 2009Q4

REPORT INFORMATION
  Report Type: 
  Country: None (occurrence: None)
  Receive Date: 20091023
  Receipt Date: 20091015
  Transmission Date: 20100525
  Serious: Yes (Other)
  Sender: FDA-Public Use
  Company Number: JP-ABBOTT-09P-087-0599853-00

PATIENT
  Sex: Female
  Weight: 45 kg

DRUGS (6)
  1. SEVOFLURANE [Suspect]
     Indication: ANAESTHESIA
     Route: 055
     Dates: start: 20090617, end: 20090617
  2. ROPIVACAINE [Suspect]
     Indication: ANALGESIC THERAPY
     Route: 008
     Dates: start: 20090617, end: 20090617
  3. ROPIVACAINE [Suspect]
     Dosage: 11.25MG TO
     Dates: start: 20090617, end: 20090617
  4. FENTANYL-100 [Concomitant]
     Indication: ANALGESIC THERAPY
     Route: 042
     Dates: start: 20090617, end: 20090617
  5. PROPOFOL [Concomitant]
     Indication: ANAESTHESIA
     Route: 042
     Dates: start: 20090617, end: 20090617
  6. CEFAZOLIN SODIUM [Concomitant]
     Indication: ANTIBIOTIC THERAPY
     Route: 042
     Dates: start: 20090617, end: 20090617

REACTIONS (2)
  - BLOOD PRESSURE DECREASED [None]
  - TORSADE DE POINTES [None]
